FAERS Safety Report 7915468-3 (Version None)
Quarter: 2011Q4

REPORT INFORMATION
  Report Type: 
  Country: None (occurrence: None)
  Receive Date: 20111115
  Receipt Date: 20111110
  Transmission Date: 20120403
  Serious: Yes (Death)
  Sender: FDA-Public Use
  Company Number: AU-B.I. PHARMACEUTICALS,INC./RIDGEFIELD-2011-AU-02044AU

PATIENT
  Sex: Male
  Weight: 88 kg

DRUGS (7)
  1. DIGOXIN [Concomitant]
  2. FISH OIL [Concomitant]
  3. IRBESARTAN [Concomitant]
  4. LEVOTHYROXINE SODIUM [Concomitant]
  5. CARVEDILOL [Concomitant]
  6. PRADAXA [Suspect]
     Dosage: 220 MG
  7. OXAZEPAM [Concomitant]

REACTIONS (5)
  - HAEMOPTYSIS [None]
  - DYSPNOEA [None]
  - PRODUCTIVE COUGH [None]
  - EMPHYSEMA [None]
  - PULMONARY HAEMORRHAGE [None]
